FAERS Safety Report 18386687 (Version 5)
Quarter: 2021Q2

REPORT INFORMATION
  Report Type: Spontaneous
  Country: US (occurrence: US)
  Receive Date: 20201015
  Receipt Date: 20210512
  Transmission Date: 20210717
  Serious: No
  Sender: FDA-Public Use
  Company Number: US-PFIZER INC-2020395752

PATIENT
  Age: 58 Year
  Sex: Female

DRUGS (6)
  1. IBRANCE [Suspect]
     Active Substance: PALBOCICLIB
     Dosage: 125 MG
     Dates: start: 20200917
  2. IBRANCE [Suspect]
     Active Substance: PALBOCICLIB
     Dosage: 100 MG
     Dates: start: 20210110
  3. IBRANCE [Suspect]
     Active Substance: PALBOCICLIB
     Dosage: 125 MG
     Dates: start: 20200903
  4. IBRANCE [Suspect]
     Active Substance: PALBOCICLIB
     Dosage: 125 MG, CYCLIC (ONCE DAILY ON DAYS 1 TO 21, FOLLOWED BY 7 DAYS OF REST, REPEATED EVERY 28 DAYS)
     Route: 048
     Dates: start: 202010
  5. IBRANCE [Suspect]
     Active Substance: PALBOCICLIB
     Indication: BREAST CANCER FEMALE
     Dosage: 125 MG
     Dates: start: 20200901
  6. CANNABIDIOL [Concomitant]
     Active Substance: CANNABIDIOL
     Dosage: DAILY

REACTIONS (6)
  - Dry eye [Unknown]
  - Fatigue [Unknown]
  - Hot flush [Unknown]
  - Nausea [Not Recovered/Not Resolved]
  - Headache [Not Recovered/Not Resolved]
  - Eye pruritus [Unknown]

NARRATIVE: CASE EVENT DATE: 20200901
